FAERS Safety Report 7478696-X (Version None)
Quarter: 2011Q2

REPORT INFORMATION
  Report Type: 
  Country: None (occurrence: None)
  Receive Date: 20110513
  Receipt Date: 20110504
  Transmission Date: 20111010
  Serious: Yes (Other)
  Sender: FDA-Public Use
  Company Number: US-ASTRAZENECA-2010SE24445

PATIENT
  Age: 69 Year
  Sex: Female
  Weight: 72.6 kg

DRUGS (28)
  1. CRESTOR [Suspect]
     Indication: ARTERIOSCLEROSIS
     Route: 048
     Dates: start: 20100101
  2. SYNTHROID [Concomitant]
     Indication: HYPOTHYROIDISM
  3. TOPROL-XL [Concomitant]
  4. CALCIUM [Concomitant]
     Indication: OSTEOPOROSIS
  5. CRESTOR [Suspect]
     Route: 048
  6. CRESTOR [Suspect]
     Route: 048
  7. CRESTOR [Suspect]
     Route: 048
     Dates: end: 20110417
  8. METFORMIN HCL [Concomitant]
     Indication: DIABETES MELLITUS
  9. STOOL SOFTENER [Concomitant]
  10. CRESTOR [Suspect]
     Route: 048
  11. CALCIUM WITH VITAMIN D [Concomitant]
     Indication: OSTEOPOROSIS
     Dosage: 600/1000 DAILY
  12. CRESTOR [Suspect]
     Route: 048
     Dates: start: 20100501, end: 20110415
  13. NEXIUM [Concomitant]
     Indication: GASTROOESOPHAGEAL REFLUX DISEASE
  14. ALGIN [Concomitant]
     Indication: DIVERTICULITIS
  15. CRESTOR [Suspect]
     Route: 048
  16. CRESTOR [Suspect]
     Route: 048
  17. CARDIZEM CD [Concomitant]
     Indication: BLOOD PRESSURE ABNORMAL
  18. TOPROL-XL [Concomitant]
     Indication: BLOOD PRESSURE ABNORMAL
  19. CRESTOR [Suspect]
     Route: 048
     Dates: end: 20110417
  20. TRICOR [Concomitant]
     Indication: HYPERTRIGLYCERIDAEMIA
  21. BIOTIN [Concomitant]
     Indication: ALOPECIA
  22. CRESTOR [Suspect]
     Route: 048
  23. CRESTOR [Suspect]
     Route: 048
  24. XANAX [Concomitant]
     Dosage: PRN
  25. CRESTOR [Suspect]
     Indication: HYPERCHOLESTEROLAEMIA
     Route: 048
     Dates: start: 20100101
  26. CRESTOR [Suspect]
     Route: 048
  27. CRESTOR [Suspect]
     Route: 048
     Dates: start: 20100501, end: 20110415
  28. NIASPAN [Concomitant]

REACTIONS (24)
  - DYSPNOEA [None]
  - OEDEMA PERIPHERAL [None]
  - INCORRECT DOSE ADMINISTERED [None]
  - PYREXIA [None]
  - PRURITUS GENERALISED [None]
  - URINARY TRACT INFECTION [None]
  - GLOMERULAR FILTRATION RATE DECREASED [None]
  - VOMITING [None]
  - INFLUENZA LIKE ILLNESS [None]
  - GAIT DISTURBANCE [None]
  - ASTHENIA [None]
  - HYPOAESTHESIA [None]
  - LETHARGY [None]
  - JOINT SWELLING [None]
  - DIARRHOEA [None]
  - MYALGIA [None]
  - MUSCULAR WEAKNESS [None]
  - FATIGUE [None]
  - ANAEMIA [None]
  - BLOOD CREATININE INCREASED [None]
  - CHILLS [None]
  - SENSATION OF HEAVINESS [None]
  - LIP SWELLING [None]
  - PAIN IN EXTREMITY [None]
